FAERS Safety Report 4692231-0 (Version None)
Quarter: 2005Q2

REPORT INFORMATION
  Report Type: 
  Country: None (occurrence: None)
  Receive Date: 20050614
  Receipt Date: 20050601
  Transmission Date: 20051028
  Serious: Yes (Death, Hospitalization)
  Sender: FDA-Public Use
  Company Number: GXKR2005JP01132

PATIENT
  Age: 47 Year
  Sex: Male

DRUGS (4)
  1. RIMACTANE [Suspect]
     Indication: PLEURISY
     Dates: start: 20040809, end: 20040824
  2. ETHAMBUTOL HCL [Suspect]
     Dates: start: 20040809, end: 20040824
  3. ISONIAZID [Suspect]
     Indication: PLEURISY
     Dates: start: 20040809, end: 20040824
  4. PYRAMIDE (PYRADMIDE) [Suspect]
     Indication: PLEURISY
     Dates: start: 20040809, end: 20040824

REACTIONS (6)
  - GASTRIC ULCER PERFORATION [None]
  - HEPATOCELLULAR DAMAGE [None]
  - LIVER DISORDER [None]
  - MULTI-ORGAN FAILURE [None]
  - OESOPHAGEAL PERFORATION [None]
  - PNEUMOMEDIASTINUM [None]
